FAERS Safety Report 14027729 (Version 2)
Quarter: 2017Q4

REPORT INFORMATION
  Report Type: Spontaneous
  Country: US (occurrence: US)
  Receive Date: 20170929
  Receipt Date: 20171109
  Transmission Date: 20180321
  Serious: No
  Sender: FDA-Public Use
  Company Number: US-ASTRAZENECA-2017SE98015

PATIENT
  Sex: Female
  Weight: 75.8 kg

DRUGS (1)
  1. SYMBICORT [Suspect]
     Active Substance: BUDESONIDE\FORMOTEROL FUMARATE DIHYDRATE
     Indication: EMPHYSEMA
     Dosage: 160/4.5 UG TWO INHALATIONS TWICE DAILY
     Route: 055
     Dates: start: 2016

REACTIONS (3)
  - Arthropathy [Unknown]
  - Product quality issue [Unknown]
  - Intentional product misuse [Recovered/Resolved]
